APPROVED DRUG PRODUCT: THIORIDAZINE HYDROCHLORIDE
Active Ingredient: THIORIDAZINE HYDROCHLORIDE
Strength: 200MG
Dosage Form/Route: TABLET;ORAL
Application: A089765 | Product #001
Applicant: PAR PHARMACEUTICAL INC
Approved: Feb 9, 1988 | RLD: No | RS: No | Type: DISCN